FAERS Safety Report 18855211 (Version 2)
Quarter: 2021Q1

REPORT INFORMATION
  Report Type: Spontaneous
  Country: US (occurrence: US)
  Receive Date: 20210205
  Receipt Date: 20210212
  Transmission Date: 20210420
  Serious: Yes (Other)
  Sender: FDA-Public Use
  Company Number: US-BAYER-2021-055164

PATIENT
  Age: 71 Year
  Sex: Female

DRUGS (1)
  1. KOGENATE FS [Suspect]
     Active Substance: ANTIHEMOPHILIC FACTOR, HUMAN RECOMBINANT
     Dosage: 2950 IU
     Route: 042

REACTIONS (3)
  - Dizziness [None]
  - Fall [None]
  - Contusion [None]

NARRATIVE: CASE EVENT DATE: 2021
